FAERS Safety Report 14472597 (Version 2)
Quarter: 2018Q2

REPORT INFORMATION
  Report Type: Report from Study
  Country: US (occurrence: US)
  Receive Date: 20180201
  Receipt Date: 20180523
  Transmission Date: 20180711
  Serious: Yes (Other)
  Sender: FDA-Public Use
  Company Number: PHEH2018US002826

PATIENT
  Sex: Female

DRUGS (2)
  1. COSENTYX [Suspect]
     Active Substance: SECUKINUMAB
     Indication: PSORIATIC ARTHROPATHY
     Dosage: 150 MG, QMO
     Route: 058
  2. COSENTYX [Suspect]
     Active Substance: SECUKINUMAB
     Dosage: 300 MG, UNK
     Route: 058

REACTIONS (8)
  - Pain [Unknown]
  - Drug ineffective [Unknown]
  - Somnolence [Unknown]
  - Lyme disease [Unknown]
  - Psoriasis [Unknown]
  - Bronchitis [Unknown]
  - Skin cancer [Unknown]
  - Fatigue [Unknown]
